FAERS Safety Report 4626315-X (Version None)
Quarter: 2005Q2

REPORT INFORMATION
  Report Type: 
  Country: None (occurrence: None)
  Receive Date: 20050325
  Receipt Date: 20050118
  Transmission Date: 20051028
  Serious: No
  Sender: FDA-Public Use
  Company Number: USA050188570

PATIENT
  Age: 73 Year
  Sex: Female

DRUGS (3)
  1. FORTEO [Suspect]
     Indication: OSTEOPOROSIS
     Dosage: 20 UG/ 1 DAY
     Dates: start: 20041207
  2. VIACTIV [Concomitant]
  3. CORTICOSTEROID NOS [Concomitant]

REACTIONS (4)
  - ASTHENIA [None]
  - JOINT INJURY [None]
  - MUSCLE SPASMS [None]
  - PAIN IN EXTREMITY [None]
